FAERS Safety Report 24565612 (Version 2)
Quarter: 2025Q1

REPORT INFORMATION
  Report Type: Spontaneous
  Country: IE (occurrence: IE)
  Receive Date: 20241030
  Receipt Date: 20250130
  Transmission Date: 20250408
  Serious: Yes (Death, Life-Threatening, Other)
  Sender: FRESENIUS KABI
  Company Number: None

PATIENT
  Age: 85 Year
  Sex: Male

DRUGS (1)
  1. PIPERACILLIN SODIUM\TAZOBACTAM SODIUM [Suspect]
     Active Substance: PIPERACILLIN SODIUM\TAZOBACTAM SODIUM
     Indication: Pneumonia
     Dates: start: 20240828, end: 20240831

REACTIONS (5)
  - Hepatic function abnormal [Fatal]
  - Acute kidney injury [Fatal]
  - Overdose [Fatal]
  - Infection [Fatal]
  - Drug ineffective [Fatal]

NARRATIVE: CASE EVENT DATE: 20240831
